FAERS Safety Report 6936470-4 (Version None)
Quarter: 2010Q3

REPORT INFORMATION
  Report Type: 
  Country: None (occurrence: None)
  Receive Date: 20100823
  Receipt Date: 20100813
  Transmission Date: 20110219
  Serious: Yes (Death, Hospitalization, Other)
  Sender: FDA-Public Use
  Company Number: GB-ROCHE-689538

PATIENT
  Sex: Female
  Weight: 75 kg

DRUGS (5)
  1. HERCEPTIN [Suspect]
     Indication: BREAST CANCER
     Dosage: 600MG LOADING DOSE ON THE 8 AUGUST 2009, 450 MG ON THE 31 AUGUST 2009.
     Route: 065
     Dates: start: 20090808, end: 20090831
  2. EPIRUBICIN [Concomitant]
     Indication: BREAST CANCER
     Dosage: REPORTED AS EPI-CMF CHEMOTHERAPY
  3. CYCLOPHOSPHAMIDE [Concomitant]
     Indication: BREAST CANCER
     Dosage: REPORTED AS EPI-CMF CHEMOTHERAPY
  4. METHOTREXATE [Concomitant]
     Indication: BREAST CANCER
     Dosage: REPORTED AS EPI-CMF CHEMOTHERAPY
  5. FLUOROURACIL [Concomitant]
     Dosage: REPORTED AS EPI-CMF CHEMOTHERAPY

REACTIONS (5)
  - ARRHYTHMIA [None]
  - CARDIAC FAILURE CONGESTIVE [None]
  - DYSPNOEA [None]
  - LOWER RESPIRATORY TRACT INFECTION [None]
  - PLEURAL EFFUSION [None]
